FAERS Safety Report 24070369 (Version 1)
Quarter: 2024Q3

REPORT INFORMATION
  Report Type: Spontaneous
  Country: VN (occurrence: VN)
  Receive Date: 20240710
  Receipt Date: 20240710
  Transmission Date: 20241016
  Serious: No
  Sender: ROCHE
  Company Number: VN-ROCHE-3403515

PATIENT
  Age: 63 Year
  Sex: Male

DRUGS (4)
  1. ALECENSA [Suspect]
     Active Substance: ALECTINIB HYDROCHLORIDE
     Indication: Lung carcinoma cell type unspecified stage IV
     Route: 065
  2. ALECENSA [Suspect]
     Active Substance: ALECTINIB HYDROCHLORIDE
     Indication: Metastases to central nervous system
  3. PEMETREXED [Concomitant]
     Active Substance: PEMETREXED
  4. CISPLATIN [Concomitant]
     Active Substance: CISPLATIN

REACTIONS (7)
  - Hepatotoxicity [Unknown]
  - Aspartate aminotransferase increased [Unknown]
  - Weight increased [Unknown]
  - Constipation [Unknown]
  - Anaemia [Unknown]
  - Gastrointestinal disorder [Unknown]
  - Alanine aminotransferase increased [Unknown]
